FAERS Safety Report 19657586 (Version 1)
Quarter: 2021Q3

REPORT INFORMATION
  Report Type: Spontaneous
  Country: FR (occurrence: FR)
  Receive Date: 20210804
  Receipt Date: 20210804
  Transmission Date: 20211014
  Serious: Yes (Other)
  Sender: FDA-Public Use
  Company Number: FR-ALLERGAN-2125911US

PATIENT
  Sex: Male

DRUGS (1)
  1. OZURDEX [Suspect]
     Active Substance: DEXAMETHASONE
     Indication: PRODUCT USED FOR UNKNOWN INDICATION
     Dosage: 0.7 MG, SINGLE
     Route: 031
     Dates: start: 20210615, end: 20210615

REACTIONS (4)
  - Anterior chamber inflammation [Unknown]
  - Visual acuity reduced [Recovered/Resolved]
  - Endophthalmitis [Unknown]
  - Vitritis [Unknown]

NARRATIVE: CASE EVENT DATE: 20210616
